FAERS Safety Report 5608749-X (Version None)
Quarter: 2008Q1

REPORT INFORMATION
  Report Type: 
  Country: None (occurrence: None)
  Receive Date: 20080129
  Receipt Date: 20080129
  Transmission Date: 20080703
  Serious: No
  Sender: FDA-Public Use
  Company Number: None

PATIENT
  Sex: Female
  Weight: 77.1115 kg

DRUGS (2)
  1. CHANTIX [Suspect]
     Dosage: STARTER PACK AND CONTINUING PACK
     Dates: start: 20070701, end: 20070801
  2. CHANTIX [Suspect]
     Dosage: STARTER PACK AND CONTINUING PACK
     Dates: start: 20080101

REACTIONS (3)
  - CONDITION AGGRAVATED [None]
  - DEPRESSION [None]
  - FEELING ABNORMAL [None]
